FAERS Safety Report 17611853 (Version 1)
Quarter: 2020Q2

REPORT INFORMATION
  Report Type: Spontaneous
  Country: BE (occurrence: BE)
  Receive Date: 20200401
  Receipt Date: 20200401
  Transmission Date: 20200713
  Serious: Yes (Other)
  Sender: FDA-Public Use
  Company Number: NVSC2020BE089182

PATIENT
  Age: 67 Year
  Sex: Female
  Weight: 58.9 kg

DRUGS (4)
  1. CALCIUM FOLINATE [Suspect]
     Active Substance: LEUCOVORIN CALCIUM
     Indication: GASTRIC CANCER STAGE II
     Dosage: 350 MG
     Route: 065
  2. 5-FLUOROURACIL [Suspect]
     Active Substance: FLUOROURACIL
     Indication: GASTRIC CANCER STAGE II
     Dosage: 4200 MG
     Route: 065
  3. OXALIPLATIN. [Suspect]
     Active Substance: OXALIPLATIN
     Indication: GASTRIC CANCER STAGE II
     Dosage: 147.58 MG
     Route: 065
  4. DOCETAXEL. [Suspect]
     Active Substance: DOCETAXEL
     Indication: GASTRIC CANCER STAGE II
     Dosage: 87.5 MG
     Route: 065

REACTIONS (6)
  - Acute kidney injury [Unknown]
  - Septic shock [Unknown]
  - Visual acuity reduced [Unknown]
  - Pneumonia pneumococcal [Unknown]
  - Headache [Unknown]
  - Product use in unapproved indication [Unknown]
